FAERS Safety Report 9491348 (Version 2)
Quarter: 2013Q3

REPORT INFORMATION
  Report Type: Spontaneous
  Country: US (occurrence: US)
  Receive Date: 20130830
  Receipt Date: 20130911
  Transmission Date: 20140515
  Serious: Yes (Hospitalization)
  Sender: FDA-Public Use
  Company Number: US-BIOMARINAP-US-2013-101394

PATIENT
  Age: 19 Year
  Sex: Male
  Weight: 46.2 kg

DRUGS (1)
  1. ALDURAZYME [Suspect]
     Indication: MUCOPOLYSACCHARIDOSIS I
     Dosage: 26.1 MG, QW
     Route: 042
     Dates: start: 200408

REACTIONS (2)
  - Spinal cord compression [Recovered/Resolved]
  - Respiratory disorder [Recovered/Resolved]
